FAERS Safety Report 5841236-2 (Version None)
Quarter: 2008Q3

REPORT INFORMATION
  Report Type: 
  Country: None (occurrence: None)
  Receive Date: 20080812
  Receipt Date: 20080812
  Transmission Date: 20090109
  Serious: Yes (Death)
  Sender: FDA-Public Use
  Company Number: None

PATIENT
  Age: 77 Year
  Sex: Male
  Weight: 74.8435 kg

DRUGS (1)
  1. HEPARIN [Suspect]
     Indication: CEREBROVASCULAR ACCIDENT PROPHYLAXIS
     Dates: start: 20080321, end: 20080324

REACTIONS (12)
  - DYSPNOEA [None]
  - FATIGUE [None]
  - FEELING HOT [None]
  - FLATULENCE [None]
  - GASTROINTESTINAL HAEMORRHAGE [None]
  - HYPERHIDROSIS [None]
  - HYPOPHAGIA [None]
  - MYOCARDIAL INFARCTION [None]
  - NAUSEA [None]
  - PHARMACEUTICAL PRODUCT COMPLAINT [None]
  - SHOCK [None]
  - VOMITING [None]
